FAERS Safety Report 9938315 (Version 1)
Quarter: 2014Q1

REPORT INFORMATION
  Report Type: Report from Study
  Country: US (occurrence: US)
  Receive Date: 20140303
  Receipt Date: 20140303
  Transmission Date: 20141002
  Serious: No
  Sender: FDA-Public Use
  Company Number: US-ABBVIE-13P-163-1032004-00

PATIENT
  Age: 52 Year
  Sex: Female
  Weight: 58.11 kg

DRUGS (2)
  1. HUMIRA [Suspect]
     Indication: RHEUMATOID ARTHRITIS
     Dates: start: 2006
  2. TOMAZAPAN [Concomitant]
     Indication: PRODUCT USED FOR UNKNOWN INDICATION

REACTIONS (4)
  - Genital infection fungal [Recovered/Resolved]
  - Fungal infection [Recovered/Resolved]
  - Genital infection fungal [Not Recovered/Not Resolved]
  - Fungal infection [Not Recovered/Not Resolved]
